FAERS Safety Report 7487493-0 (Version None)
Quarter: 2011Q2

REPORT INFORMATION
  Report Type: 
  Country: None (occurrence: None)
  Receive Date: 20110518
  Receipt Date: 20110504
  Transmission Date: 20111010
  Serious: Yes (Life-Threatening, Hospitalization, Disabling, Other)
  Sender: FDA-Public Use
  Company Number: US-ELI_LILLY_AND_COMPANY-US201102006228

PATIENT
  Sex: Female

DRUGS (5)
  1. LANTUS [Concomitant]
     Dosage: UNK
     Dates: start: 20070301
  2. HUMALOG [Suspect]
     Indication: DIABETES MELLITUS
     Dosage: UNK, AS NEEDED
     Dates: start: 20070301
  3. HUMALOG [Suspect]
     Dosage: UNK, AS NEEDED
  4. HUMALOG [Suspect]
     Dosage: UNK, AS NEEDED
  5. HUMALOG [Suspect]
     Dosage: UNK, AS NEEDED
     Route: 058
     Dates: start: 19661101, end: 20070101

REACTIONS (23)
  - BACK INJURY [None]
  - DRUG INEFFECTIVE [None]
  - NECK INJURY [None]
  - CRUSH INJURY [None]
  - GLYCOSYLATED HAEMOGLOBIN INCREASED [None]
  - MEMORY IMPAIRMENT [None]
  - CARDIO-RESPIRATORY ARREST [None]
  - CARPAL TUNNEL SYNDROME [None]
  - UNRESPONSIVE TO STIMULI [None]
  - BLOOD GLUCOSE FLUCTUATION [None]
  - INSOMNIA [None]
  - VOMITING [None]
  - ROAD TRAFFIC ACCIDENT [None]
  - BLOOD PRESSURE DECREASED [None]
  - BACK PAIN [None]
  - SPINAL COMPRESSION FRACTURE [None]
  - DIABETIC COMA [None]
  - PROTEINURIA [None]
  - CERVICAL VERTEBRAL FRACTURE [None]
  - VISION BLURRED [None]
  - BLOOD GLUCOSE INCREASED [None]
  - PAIN [None]
  - SPINAL FRACTURE [None]
